FAERS Safety Report 6902230-3 (Version None)
Quarter: 2010Q3

REPORT INFORMATION
  Report Type: 
  Country: None (occurrence: None)
  Receive Date: 20100803
  Receipt Date: 20080501
  Transmission Date: 20110219
  Serious: Yes (Other)
  Sender: FDA-Public Use
  Company Number: US-PFIZER INC-2008038930

PATIENT
  Sex: Female
  Weight: 52.2 kg

DRUGS (15)
  1. LYRICA [Suspect]
     Indication: NEURALGIA
     Dates: start: 20080402
  2. LYRICA [Suspect]
     Indication: NEUROPATHY PERIPHERAL
  3. GENOTROPIN [Concomitant]
  4. VIVELLE [Concomitant]
  5. ZETIA [Concomitant]
  6. CRESTOR [Concomitant]
  7. ZYRTEC [Concomitant]
  8. NEXIUM [Concomitant]
  9. FIORICET [Concomitant]
  10. TOPROL-XL [Concomitant]
  11. SYNTHROID [Concomitant]
  12. HYDROCORTISONE [Concomitant]
  13. PROMETHAZINE [Concomitant]
  14. ZOFRAN [Concomitant]
  15. METHADONE HCL [Concomitant]

REACTIONS (10)
  - ABDOMINAL DISTENSION [None]
  - APNOEA [None]
  - BLOOD AMYLASE INCREASED [None]
  - DECREASED APPETITE [None]
  - DYSPNOEA [None]
  - HEPATIC ENZYME INCREASED [None]
  - LIPASE INCREASED [None]
  - OEDEMA PERIPHERAL [None]
  - WEIGHT DECREASED [None]
  - WEIGHT INCREASED [None]
